FAERS Safety Report 7619693-0 (Version None)
Quarter: 2011Q3

REPORT INFORMATION
  Report Type: 
  Country: None (occurrence: None)
  Receive Date: 20110719
  Receipt Date: 20110712
  Transmission Date: 20111222
  Serious: Yes (Hospitalization, Disabling)
  Sender: FDA-Public Use
  Company Number: US-B.I. PHARMACEUTICALS,INC./RIDGEFIELD-2011-BP-04998BP

PATIENT
  Age: 88 Year
  Sex: Female
  Weight: 63 kg

DRUGS (15)
  1. PRADAXA [Suspect]
     Indication: ATRIAL FIBRILLATION
  2. CRESTOR [Concomitant]
     Dosage: 10 MG
  3. VIT C [Concomitant]
  4. NORVASC [Concomitant]
  5. NITROFURANTOIN [Concomitant]
  6. FERROUS SUL TAB [Concomitant]
     Dosage: 325 MG
  7. COREG CR [Concomitant]
  8. PRADAXA [Suspect]
     Indication: CEREBROVASCULAR ACCIDENT
     Dosage: 300 MG
     Dates: start: 20110209, end: 20110211
  9. THYROID TAB [Concomitant]
     Dosage: 100 MCG
  10. HYDRALAZINE HCL [Concomitant]
  11. FISH OIL [Concomitant]
     Dosage: 2000 MG
  12. VITAMIN B-12 [Concomitant]
  13. CINNAMON [Concomitant]
  14. LOSARTAN [Concomitant]
     Dosage: 100 MG
  15. VIT D [Concomitant]
     Dosage: 3000 U

REACTIONS (3)
  - RECTAL HAEMORRHAGE [None]
  - GASTROINTESTINAL HAEMORRHAGE [None]
  - MELAENA [None]
